FAERS Safety Report 6986332-1 (Version None)
Quarter: 2010Q3

REPORT INFORMATION
  Report Type: 
  Country: None (occurrence: None)
  Receive Date: 20100915
  Receipt Date: 20090618
  Transmission Date: 20110219
  Serious: No
  Sender: FDA-Public Use
  Company Number: US-WYE-H09849809

PATIENT
  Sex: Female

DRUGS (2)
  1. PRISTIQ [Suspect]
     Indication: BACK PAIN
     Dosage: ^CUT TABLET IN HALF FOR THE FIRST DOSE^
     Route: 048
     Dates: start: 20090618
  2. CELEBREX [Concomitant]

REACTIONS (4)
  - DIARRHOEA [None]
  - DIZZINESS [None]
  - INTENTIONAL DRUG MISUSE [None]
  - NAUSEA [None]
